FAERS Safety Report 19224727 (Version 1)
Quarter: 2021Q2

REPORT INFORMATION
  Report Type: Spontaneous
  Country: US (occurrence: US)
  Receive Date: 20210506
  Receipt Date: 20210506
  Transmission Date: 20210717
  Serious: Yes (Other)
  Sender: FDA-Public Use
  Company Number: US-LANNETT COMPANY, INC.-US-2021LAN000158

PATIENT
  Sex: Female

DRUGS (1)
  1. ISOSORBIDE MONONITRATE. [Suspect]
     Active Substance: ISOSORBIDE MONONITRATE
     Indication: CARDIAC DISORDER
     Dosage: 60 MG, QD
     Route: 048

REACTIONS (8)
  - Eructation [Recovered/Resolved]
  - Loss of personal independence in daily activities [Recovered/Resolved]
  - Intestinal angioedema [Unknown]
  - Irritable bowel syndrome [Recovered/Resolved]
  - Flatulence [Recovered/Resolved]
  - Manufacturing materials issue [Unknown]
  - Diarrhoea [Recovered/Resolved]
  - Abdominal distension [Recovered/Resolved]
